FAERS Safety Report 20481924 (Version 1)
Quarter: 2022Q1

REPORT INFORMATION
  Report Type: Spontaneous
  Country: US (occurrence: US)
  Receive Date: 20220216
  Receipt Date: 20220216
  Transmission Date: 20220424
  Serious: No
  Sender: FDA-Public Use
  Company Number: US-BoehringerIngelheim-2022-BI-154314

PATIENT
  Sex: Female

DRUGS (1)
  1. SPIRIVA RESPIMAT [Suspect]
     Active Substance: TIOTROPIUM BROMIDE
     Indication: Product used for unknown indication
     Dosage: 2 PUFFS IN THE MORNING AND 2 PUFFS IN THE EVENING
     Dates: start: 20220114

REACTIONS (5)
  - Abdominal discomfort [Recovered/Resolved]
  - Thirst [Unknown]
  - Dry mouth [Not Recovered/Not Resolved]
  - Prescribed overdose [Unknown]
  - Product quality issue [Unknown]

NARRATIVE: CASE EVENT DATE: 20220101
